FAERS Safety Report 9343003 (Version 3)
Quarter: 2013Q3

REPORT INFORMATION
  Report Type: Report from Study
  Country: US (occurrence: US)
  Receive Date: 20130611
  Receipt Date: 20130813
  Transmission Date: 20140515
  Serious: Yes (Death, Life-Threatening, Hospitalization, Other)
  Sender: FDA-Public Use
  Company Number: US-CELGENEUS-163-C5013-13052902

PATIENT
  Age: 69 Year
  Sex: Male
  Weight: 128.2 kg

DRUGS (67)
  1. CC-5013 [Suspect]
     Indication: ACUTE MYELOID LEUKAEMIA
     Dosage: 50 MILLIGRAM
     Route: 048
     Dates: start: 20130411, end: 20130508
  2. CC-5013 [Suspect]
     Dosage: 50 MILLIGRAM
     Route: 048
     Dates: start: 20130509, end: 20130517
  3. ASPIRIN [Concomitant]
     Indication: CORONARY ARTERY DISEASE
     Dosage: 325 MILLIGRAM
     Route: 048
     Dates: start: 200302, end: 20130501
  4. ASPIRIN [Concomitant]
     Dosage: 81 MILLIGRAM
     Route: 048
     Dates: start: 20130502, end: 20130516
  5. METOPROLOL TARTRATE [Concomitant]
     Indication: HYPERTENSION
     Dosage: 100 MILLIGRAM
     Route: 048
     Dates: start: 200302, end: 20130516
  6. MULTIVITAMINS [Concomitant]
     Indication: SUPPLEMENTATION THERAPY
     Dosage: 1 TABLET
     Route: 048
     Dates: start: 2008
  7. ALLOPURINOL [Concomitant]
     Indication: PROPHYLAXIS
     Dosage: 100 MILLIGRAM
     Route: 048
     Dates: start: 20130405, end: 20130415
  8. PERIDEX [Concomitant]
     Indication: INFECTION PROPHYLAXIS
     Dosage: 60 MILLILITER
     Route: 048
     Dates: start: 20130405
  9. PERIDEX [Concomitant]
     Dosage: 60 MILLILITER
     Route: 048
     Dates: start: 20130517, end: 20130531
  10. LATANOPROST [Concomitant]
     Indication: GLAUCOMA
     Dosage: 1 DROPS
     Route: 047
     Dates: start: 2011
  11. LATANOPROST [Concomitant]
     Dosage: 1 DROPS
     Route: 047
     Dates: start: 20130517
  12. LATANOPROST [Concomitant]
     Dosage: 1 DROPS
     Route: 047
     Dates: start: 20130530
  13. OMEGA 3 [Concomitant]
     Indication: GLAUCOMA
     Dosage: 4 CAPSULE
     Route: 048
     Dates: start: 2011
  14. SIMVASTATIN [Concomitant]
     Indication: HYPERLIPIDAEMIA
     Dosage: 40 MILLIGRAM
     Route: 048
     Dates: start: 20130415
  15. COLACE [Concomitant]
     Indication: CONSTIPATION
     Dosage: 200 MILLIGRAM
     Route: 048
     Dates: start: 20130414, end: 20130509
  16. AMOXICILLIN [Concomitant]
     Indication: EAR INFECTION
     Dosage: 1500 MILLIGRAM
     Route: 048
     Dates: start: 20130423, end: 20130427
  17. MIRALAX [Concomitant]
     Indication: CONSTIPATION
     Route: 048
     Dates: start: 20130414, end: 20130509
  18. CORTISPORIN [Concomitant]
     Indication: EAR INFECTION
     Dosage: 6 DROPS
     Route: 001
     Dates: start: 20130427, end: 20130501
  19. HYDROCHLOROTHIAZIDE [Concomitant]
     Indication: HYPERTENSION
     Dosage: 25 MILLIGRAM
     Route: 048
     Dates: start: 200302, end: 20130516
  20. LEVAQUIN [Concomitant]
     Indication: EAR INFECTION
     Dosage: 750 MILLIGRAM
     Route: 048
     Dates: start: 20130501, end: 20130506
  21. TYLENOL [Concomitant]
     Indication: PAIN
     Dosage: 3900 MILLIGRAM
     Route: 048
     Dates: start: 20130427
  22. TYLENOL [Concomitant]
     Indication: PYREXIA
     Dosage: 2600 MILLIGRAM
     Route: 048
     Dates: start: 20130517, end: 20130529
  23. TYLENOL [Concomitant]
     Indication: TRANSFUSION
  24. BENADRYL [Concomitant]
     Indication: TRANSFUSION
     Dosage: 25-50MG
     Route: 048
     Dates: start: 20130427
  25. BENADRYL [Concomitant]
     Dosage: 25-50MG
     Route: 048
     Dates: start: 20130517, end: 20130527
  26. OXY-IR [Concomitant]
     Indication: PAIN
     Dosage: 5-10MG
     Route: 048
     Dates: start: 20130516, end: 20130518
  27. OXY-IR [Concomitant]
     Dosage: 15-20MG
     Route: 048
     Dates: start: 20130518, end: 20130520
  28. COREG [Concomitant]
     Indication: ATRIAL FIBRILLATION
     Dosage: 25 MILLIGRAM
     Route: 048
     Dates: start: 20130517, end: 20130530
  29. POTASSIUM CHLORIDE [Concomitant]
     Indication: HYPOKALAEMIA
     Dosage: 20-40MEQ
     Route: 041
     Dates: start: 20130517
  30. SODIUM CHLORIDE [Concomitant]
     Indication: TRANSFUSION
     Route: 041
     Dates: start: 20130517
  31. SODIUM CHLORIDE [Concomitant]
     Indication: CATHETER MANAGEMENT
     Dosage: 20 MILLILITER
     Route: 041
     Dates: start: 20130524, end: 20130531
  32. SODIUM CHLORIDE [Concomitant]
     Indication: HYPOTENSION
     Dosage: 1000 MILLILITER
     Route: 041
     Dates: start: 20130602, end: 20130602
  33. PRILOSEC [Concomitant]
     Indication: GASTROOESOPHAGEAL REFLUX DISEASE
     Dosage: 40 MILLIGRAM
     Route: 048
     Dates: start: 20130518, end: 20130530
  34. LASIX [Concomitant]
     Indication: OEDEMA
     Dosage: 40 MILLIGRAM
     Route: 041
     Dates: start: 20130520, end: 20130520
  35. LASIX [Concomitant]
     Dosage: 40 MILLIGRAM
     Route: 041
     Dates: start: 20130521, end: 20130521
  36. LASIX [Concomitant]
     Dosage: 20 MILLIGRAM
     Route: 041
     Dates: start: 20130524, end: 20130524
  37. LASIX [Concomitant]
     Dosage: 40 MILLIGRAM
     Route: 041
     Dates: start: 20130526, end: 20130526
  38. LASIX [Concomitant]
     Dosage: 20 MILLIGRAM
     Route: 041
     Dates: start: 20130526, end: 20130526
  39. LASIX [Concomitant]
     Dosage: 40 MILLIGRAM
     Route: 041
     Dates: start: 20130527, end: 20130527
  40. ACTIVASE [Concomitant]
     Indication: MEDICAL DEVICE COMPLICATION
     Dosage: 2 MILLIGRAM
     Route: 041
     Dates: start: 20130521, end: 20130521
  41. ACTIVASE [Concomitant]
     Dosage: 2 MILLIGRAM
     Route: 041
     Dates: start: 20130522, end: 20130522
  42. ACTIVASE [Concomitant]
     Dosage: 2 MILLIGRAM
     Route: 041
     Dates: start: 20130531, end: 20130531
  43. AMBIEN [Concomitant]
     Indication: INSOMNIA
     Dosage: 10 MILLIGRAM
     Route: 048
     Dates: start: 20130521, end: 20130524
  44. AMBIEN [Concomitant]
     Dosage: 12.5 MILLIGRAM
     Route: 048
     Dates: start: 20130525, end: 20130530
  45. FLAGYL [Concomitant]
     Indication: CLOSTRIDIUM DIFFICILE COLITIS
     Dosage: 1500 MILLIGRAM
     Route: 041
     Dates: start: 20130525, end: 20130528
  46. VANCOCIN [Concomitant]
     Indication: CLOSTRIDIUM DIFFICILE COLITIS
     Dosage: 2000 MILLIGRAM
     Route: 048
     Dates: start: 20130525, end: 201305
  47. MYCAMINE [Concomitant]
     Indication: CLOSTRIDIUM DIFFICILE INFECTION
     Dosage: 100 MILLIGRAM
     Route: 041
     Dates: start: 20130526
  48. VALTREX [Concomitant]
     Indication: ORAL DISORDER
     Dosage: 4 GRAM
     Route: 048
     Dates: start: 20130523, end: 20130524
  49. ALBUTEROL [Concomitant]
     Indication: DYSPNOEA
     Dosage: 15 MILLIGRAM
     Route: 055
     Dates: start: 20130526, end: 20130530
  50. NEXIUM [Concomitant]
     Indication: GASTROOESOPHAGEAL REFLUX DISEASE
     Dosage: 40 MILLIGRAM
     Route: 041
     Dates: start: 20130531, end: 20130531
  51. LEVOPHED [Concomitant]
     Indication: SEPTIC SHOCK
     Route: 041
     Dates: start: 20130531
  52. FENTANYL CITRATE [Concomitant]
     Indication: SEDATION
     Dosage: 12.5-75MCG
     Route: 041
     Dates: start: 20130531, end: 20130531
  53. PRECEDEX [Concomitant]
     Indication: SEDATION
     Route: 041
     Dates: start: 20130531
  54. NOVOLOG [Concomitant]
     Indication: HYPERGLYCAEMIA
     Dosage: 2-8UNITS
     Route: 058
     Dates: start: 20130531
  55. ALBUMIN HUMAN [Concomitant]
     Indication: HYPOTENSION
     Dosage: 250 MILLIGRAM
     Route: 041
     Dates: start: 20130601, end: 20130601
  56. ALBUMIN HUMAN [Concomitant]
     Dosage: 250 MILLIGRAM
     Route: 041
     Dates: start: 20130602, end: 20130602
  57. CALCIUM CHLORIDE [Concomitant]
     Indication: HYPOCALCAEMIA
     Dosage: 1 AMP
     Route: 041
     Dates: start: 20130602, end: 20130602
  58. POTASSIUM CHLORIDE/DEXTROSE/SODIUM CHLORIDE [Concomitant]
     Indication: HYPOTENSION
     Dosage: 100MLS/HR
     Route: 041
     Dates: start: 20130517, end: 20130518
  59. POTASSIUM CHLORIDE/DEXTROSE/SODIUM CHLORIDE [Concomitant]
     Dosage: 50MLS/HR
     Route: 041
     Dates: start: 20130518, end: 20130520
  60. POTASSIUM CHLORIDE/DEXTROSE/SODIUM CHLORIDE [Concomitant]
     Dosage: 50MLS/HR
     Route: 041
     Dates: start: 20130520, end: 20130520
  61. VERSED [Concomitant]
     Indication: SEDATION
     Route: 065
  62. LIDOCAINE [Concomitant]
     Indication: ANAESTHESIA
     Route: 061
  63. ATIVAN [Concomitant]
     Indication: PRODUCT USED FOR UNKNOWN INDICATION
     Dosage: 1 - 2 MG
     Route: 048
     Dates: start: 20130517, end: 20130530
  64. MICAFUNGIN SODIUM [Concomitant]
     Indication: PRODUCT USED FOR UNKNOWN INDICATION
     Dosage: 600 MILLIGRAM
     Route: 048
     Dates: start: 20130526, end: 20130530
  65. ONDANSETRON HCL [Concomitant]
     Indication: PRODUCT USED FOR UNKNOWN INDICATION
     Dosage: 4-8 MG
     Route: 065
     Dates: start: 20130518, end: 20130527
  66. VANCOMYCIN HCL [Concomitant]
     Indication: PRODUCT USED FOR UNKNOWN INDICATION
     Dosage: 2000 MILLIGRAM
     Route: 048
     Dates: start: 20130526, end: 20130531
  67. MAGNESIUM CITRATE [Concomitant]
     Indication: CONSTIPATION
     Route: 065

REACTIONS (7)
  - Cardio-respiratory arrest [Fatal]
  - Pulmonary haemorrhage [Not Recovered/Not Resolved]
  - Thrombocytopenia [Not Recovered/Not Resolved]
  - Acute respiratory failure [Not Recovered/Not Resolved]
  - Septic shock [Not Recovered/Not Resolved]
  - Febrile neutropenia [Not Recovered/Not Resolved]
  - Anaemia [Not Recovered/Not Resolved]
